FAERS Safety Report 8482871-5 (Version None)
Quarter: 2012Q3

REPORT INFORMATION
  Report Type: 
  Country: None (occurrence: None)
  Receive Date: 20120702
  Receipt Date: 20120628
  Transmission Date: 20120928
  Serious: No
  Sender: FDA-Public Use
  Company Number: US-B.I. PHARMACEUTICALS,INC./RIDGEFIELD-2012-BP-14688BP

PATIENT
  Sex: Female

DRUGS (4)
  1. LISINOPRIL [Concomitant]
     Indication: BLOOD PRESSURE
     Dosage: 20 MG
     Route: 048
  2. PRILOSEC [Concomitant]
     Indication: GASTROOESOPHAGEAL REFLUX DISEASE
     Route: 048
  3. PRADAXA [Suspect]
     Indication: ATRIAL FIBRILLATION
     Dosage: 300 MG
     Route: 048
     Dates: start: 20120607
  4. METOPROLOL TARTRATE [Concomitant]
     Indication: BLOOD PRESSURE
     Dosage: 12.5 MG
     Route: 048

REACTIONS (1)
  - DYSPHAGIA [None]
